FAERS Safety Report 9932362 (Version 1)
Quarter: 2014Q1

REPORT INFORMATION
  Report Type: Spontaneous
  Country: US (occurrence: US)
  Receive Date: 20140228
  Receipt Date: 20140228
  Transmission Date: 20141002
  Serious: No
  Sender: FDA-Public Use
  Company Number: US-ABBVIE-13P-163-1111292-00

PATIENT
  Age: 75 Year
  Sex: Male
  Weight: 80.36 kg

DRUGS (7)
  1. ANDROGEL [Suspect]
     Indication: BLOOD TESTOSTERONE DECREASED
     Dosage: THREE PUMP ACTUATIONS
     Dates: start: 201302
  2. ANDROGEL [Suspect]
     Indication: BLOOD TESTOSTERONE DECREASED
     Dates: start: 2011, end: 201302
  3. ANDROGEL [Suspect]
     Dates: start: 2013, end: 201305
  4. NIASPAN [Concomitant]
     Indication: BLOOD CHOLESTEROL INCREASED
  5. SIMVASTATIN [Concomitant]
     Indication: BLOOD CHOLESTEROL INCREASED
  6. LISINOPRIL [Concomitant]
     Indication: HYPERTENSION
  7. EYE DROPS [Concomitant]
     Indication: GLAUCOMA

REACTIONS (4)
  - Fatigue [Not Recovered/Not Resolved]
  - Drug dispensing error [Unknown]
  - Red blood cell count increased [Recovered/Resolved]
  - Depressed mood [Not Recovered/Not Resolved]
